FAERS Safety Report 14111540 (Version 1)
Quarter: 2017Q4

REPORT INFORMATION
  Report Type: Spontaneous
  Country: FR (occurrence: FR)
  Receive Date: 20171020
  Receipt Date: 20171020
  Transmission Date: 20180321
  Serious: Yes (Other)
  Sender: FDA-Public Use
  Company Number: FR-MERCK KGAA-2030941

PATIENT
  Age: 10 Year
  Sex: Female

DRUGS (2)
  1. NEO MERCAZOLE [Concomitant]
     Active Substance: CARBIMAZOLE
  2. NOVOTHYROX [Suspect]
     Active Substance: LEVOTHYROXINE SODIUM
     Indication: SECONDARY HYPOTHYROIDISM
     Route: 048
     Dates: start: 201703, end: 20170909

REACTIONS (6)
  - Abdominal pain [Recovered/Resolved]
  - Arthralgia [Recovered/Resolved]
  - Fatigue [Recovered/Resolved]
  - Diarrhoea [Recovered/Resolved]
  - Diffuse alopecia [Recovered/Resolved]
  - Blood thyroid stimulating hormone increased [Unknown]

NARRATIVE: CASE EVENT DATE: 2017
